FAERS Safety Report 5948024-7 (Version None)
Quarter: 2008Q4

REPORT INFORMATION
  Report Type: 
  Country: None (occurrence: None)
  Receive Date: 20081107
  Receipt Date: 20081029
  Transmission Date: 20090506
  Serious: Yes (Hospitalization, Other)
  Sender: FDA-Public Use
  Company Number: IPS_01301_2008

PATIENT
  Sex: Male

DRUGS (3)
  1. APO-GO (APO-GO - APOMORPHINE HYDROCHLORIDE) (NOT SPECIFIED) [Suspect]
     Indication: PARKINSON'S DISEASE
     Dosage: (100 MG PER DAY FOR 7 MONTHS SUBCUTANEOUS)
     Route: 058
     Dates: start: 20080301, end: 20081001
  2. CO-BENELDOPA (CO-BENELDOPA) (NOT SPECIFIED) [Suspect]
     Indication: PARKINSON'S DISEASE
     Dosage: (800 MG QD ORAL)
     Route: 048
  3. ENTACAPONE [Concomitant]

REACTIONS (4)
  - CHEST DISCOMFORT [None]
  - CHEST PAIN [None]
  - DYSPNOEA [None]
  - HAEMOLYTIC ANAEMIA [None]
